FAERS Safety Report 4607624-7 (Version None)
Quarter: 2005Q1

REPORT INFORMATION
  Report Type: 
  Country: None (occurrence: None)
  Receive Date: 20050310
  Receipt Date: 20050228
  Transmission Date: 20050727
  Serious: Yes (Other)
  Sender: FDA-Public Use
  Company Number: 2005040012

PATIENT
  Age: 61 Year
  Sex: Female

DRUGS (8)
  1. AROMASIN [Suspect]
     Indication: BREAST CANCER
     Dosage: 25 MG, ORAL
     Route: 048
     Dates: start: 20041101
  2. PAMIDRONATE DISODIUM [Suspect]
     Indication: BONE PAIN
     Dosage: 90 MG, INTRAVENOUS
     Route: 042
     Dates: start: 20041207
  3. OMEPRAZOLE [Concomitant]
  4. BENDROFLUMETHIAZIDE (BENDROFLUMETHIAZIDE) [Concomitant]
  5. ACETAMINOPHEN [Concomitant]
  6. GABAPENTIN [Concomitant]
  7. SENNA (SENNA) [Concomitant]
  8. ATENOLOL [Concomitant]

REACTIONS (1)
  - HYPOCALCAEMIA [None]
